FAERS Safety Report 4803284-0 (Version None)
Quarter: 2005Q3

REPORT INFORMATION
  Report Type: 
  Country: None (occurrence: None)
  Receive Date: 20050929
  Receipt Date: 20050819
  Transmission Date: 20060218
  Serious: No
  Sender: FDA-Public Use
  Company Number: 05P-163-0308946-00

PATIENT
  Age: 76 Year
  Sex: Female
  Weight: 58.9676 kg

DRUGS (1)
  1. HUMIRA [Suspect]
     Indication: RHEUMATOID ARTHRITIS
     Dosage: 40 MG, 1 IN 1 M, SUBCUTANEOUS
     Route: 058
     Dates: start: 20050201, end: 20050601

REACTIONS (2)
  - LYMPHOMA [None]
  - MALIGNANT MELANOMA [None]
